FAERS Safety Report 6434926-4 (Version None)
Quarter: 2009Q4

REPORT INFORMATION
  Report Type: 
  Country: None (occurrence: None)
  Receive Date: 20091106
  Receipt Date: 20091030
  Transmission Date: 20100525
  Serious: Yes (Life-Threatening, Other)
  Sender: FDA-Public Use
  Company Number: 2009-02162

PATIENT
  Age: 70 Year
  Sex: Male
  Weight: 42 kg

DRUGS (9)
  1. VELCADE [Suspect]
     Indication: MULTIPLE MYELOMA
     Dosage: 1.7 MG, INTRAVENOUS; 0.8 MG, INTRAVENOUS
     Route: 042
     Dates: start: 20090509, end: 20090519
  2. VELCADE [Suspect]
     Indication: MULTIPLE MYELOMA
     Dosage: 1.7 MG, INTRAVENOUS; 0.8 MG, INTRAVENOUS
     Route: 042
     Dates: start: 20090615, end: 20090615
  3. SULFAMETHOXAZOLE AND TRIMETHOPRIM [Concomitant]
  4. NORVASC [Concomitant]
  5. BIOFERMIN R (STREPTOCOCCUS FAECALIS) [Concomitant]
  6. VOLTAREN [Concomitant]
  7. AMITRIPTYLINE HCL [Concomitant]
  8. VORICONAZOLE [Concomitant]
  9. DECADRON [Concomitant]

REACTIONS (8)
  - ASPERGILLOSIS [None]
  - BRONCHIAL WALL THICKENING [None]
  - HYPOTENSION [None]
  - INAPPROPRIATE ANTIDIURETIC HORMONE SECRETION [None]
  - LUNG DISORDER [None]
  - NEUROPATHY PERIPHERAL [None]
  - PLEURAL EFFUSION [None]
  - THROMBOCYTOPENIA [None]
